FAERS Safety Report 14371365 (Version 1)
Quarter: 2018Q1

REPORT INFORMATION
  Report Type: Spontaneous
  Country: US (occurrence: US)
  Receive Date: 20180109
  Receipt Date: 20180109
  Transmission Date: 20180509
  Serious: No
  Sender: FDA-Public Use
  Company Number: None

PATIENT
  Age: 54 Year
  Sex: Female

DRUGS (1)
  1. OTREXUP [Suspect]
     Active Substance: METHOTREXATE
     Indication: RHEUMATOID ARTHRITIS
     Route: 058
     Dates: start: 20170928

REACTIONS (6)
  - Headache [None]
  - Nausea [None]
  - Vomiting [None]
  - Fatigue [None]
  - Dizziness [None]
  - Abdominal discomfort [None]

NARRATIVE: CASE EVENT DATE: 20170928
